FAERS Safety Report 23643548 (Version 1)
Quarter: 2024Q1

REPORT INFORMATION
  Report Type: Spontaneous
  Country: US (occurrence: US)
  Receive Date: 20240318
  Receipt Date: 20240318
  Transmission Date: 20240410
  Serious: Yes (Other)
  Sender: FDA-Public Use
  Company Number: US-ALEMBIC PHARMACUETICALS LIMITED-2024SCAL000228

PATIENT

DRUGS (4)
  1. DAPSONE [Suspect]
     Active Substance: DAPSONE
     Indication: Lichen planus pemphigoides
     Dosage: UNK
     Route: 065
  2. DAPSONE [Suspect]
     Active Substance: DAPSONE
     Indication: Lichenoid keratosis
  3. PREDNISONE [Concomitant]
     Active Substance: PREDNISONE
     Indication: Lichen planus pemphigoides
     Dosage: UNK
     Route: 065
  4. PREDNISONE [Concomitant]
     Active Substance: PREDNISONE
     Indication: Lichenoid keratosis

REACTIONS (4)
  - Drug reaction with eosinophilia and systemic symptoms [Unknown]
  - Liver injury [Unknown]
  - Haemolytic anaemia [Unknown]
  - Pyrexia [Unknown]
